FAERS Safety Report 15827654 (Version 1)
Quarter: 2019Q1

REPORT INFORMATION
  Report Type: Spontaneous
  Country: US (occurrence: US)
  Receive Date: 20190115
  Receipt Date: 20190115
  Transmission Date: 20190417
  Serious: Yes (Death, Other)
  Sender: FDA-Public Use
  Company Number: US-THE RITEDOSE CORPORATION-2018RIT000365

PATIENT

DRUGS (3)
  1. IPRATROPIUM BROMIDE INHALATION SOLUTION [Suspect]
     Active Substance: IPRATROPIUM BROMIDE
     Indication: PRODUCT USED FOR UNKNOWN INDICATION
     Dosage: UNK
     Route: 055
  2. TOBI [Suspect]
     Active Substance: TOBRAMYCIN
     Indication: PNEUMONIA STAPHYLOCOCCAL
     Dosage: 300 MG, Q12H FOR 28 DAYS ON AND 28 DAYS OFF
     Route: 055
     Dates: start: 201809
  3. PREDNISONE. [Suspect]
     Active Substance: PREDNISONE
     Indication: PRODUCT USED FOR UNKNOWN INDICATION
     Dosage: 20 MG, QOD
     Route: 048

REACTIONS (4)
  - Failure to thrive [Fatal]
  - Pneumonia staphylococcal [Fatal]
  - Chronic lymphocytic leukaemia [Unknown]
  - Breast cancer [Unknown]
